FAERS Safety Report 6554052-3 (Version None)
Quarter: 2010Q1

REPORT INFORMATION
  Report Type: 
  Country: None (occurrence: None)
  Receive Date: 20100125
  Receipt Date: 20100125
  Transmission Date: 20100710
  Serious: Yes (Other)
  Sender: FDA-Public Use
  Company Number: None

PATIENT
  Sex: Female
  Weight: 88.4514 kg

DRUGS (2)
  1. PROAIR HFA [Suspect]
     Indication: ASTHMA
     Dosage: 1 PUFFS TWICE A DAY PO
     Route: 048
     Dates: start: 20090110, end: 20090910
  2. PROVENTIL-HFA [Suspect]
     Indication: ASTHMA
     Dosage: 1 PUFF TWICE A DAY PO
     Route: 048
     Dates: start: 20090910, end: 20100123

REACTIONS (12)
  - ASTHMA [None]
  - DRUG EFFECT DECREASED [None]
  - DRUG INEFFECTIVE [None]
  - DRY THROAT [None]
  - ECONOMIC PROBLEM [None]
  - HEART RATE INCREASED [None]
  - INSOMNIA [None]
  - PRODUCT FORMULATION ISSUE [None]
  - RETCHING [None]
  - TREATMENT NONCOMPLIANCE [None]
  - TREMOR [None]
  - VOMITING [None]
